FAERS Safety Report 4539666-4 (Version None)
Quarter: 2004Q4

REPORT INFORMATION
  Report Type: 
  Country: None (occurrence: None)
  Receive Date: 20041228
  Receipt Date: 20041217
  Transmission Date: 20050328
  Serious: Yes (Other)
  Sender: FDA-Public Use
  Company Number: NO-MERCK-0412NOR00033

PATIENT
  Age: 76 Year
  Sex: Female

DRUGS (6)
  1. VIOXX [Suspect]
     Indication: POLYARTHRITIS
     Route: 048
     Dates: start: 20030701, end: 20041004
  2. PERPHENAZINE [Concomitant]
     Route: 065
  3. BIPERIDEN HYDROCHLORIDE [Concomitant]
     Route: 065
  4. PEPCIDIN [Concomitant]
     Route: 065
  5. FUROSEMIDE [Concomitant]
     Route: 065
  6. CLOMIPRAMINE HYDROCHLORIDE [Concomitant]
     Route: 065

REACTIONS (1)
  - ANGINA PECTORIS [None]
